FAERS Safety Report 25833364 (Version 1)
Quarter: 2025Q3

REPORT INFORMATION
  Report Type: Report from Study
  Country: CN (occurrence: CN)
  Receive Date: 20250922
  Receipt Date: 20250922
  Transmission Date: 20251021
  Serious: Yes (Death, Other)
  Sender: PFIZER
  Company Number: CN-TAKEDA-2024TUS001994

PATIENT
  Age: 73 Year
  Sex: Male
  Weight: 53 kg

DRUGS (9)
  1. BRENTUXIMAB VEDOTIN [Suspect]
     Active Substance: BRENTUXIMAB VEDOTIN
     Indication: Peripheral T-cell lymphoma unspecified
     Dosage: 100 MILLIGRAM, Q3WEEKS
     Route: 042
     Dates: start: 20231218
  2. PREDNISONE [Suspect]
     Active Substance: PREDNISONE
     Indication: Peripheral T-cell lymphoma unspecified
     Dosage: 15 MILLIGRAM, QD
     Route: 048
     Dates: start: 20231218, end: 20231220
  3. TUCIDINOSTAT [Suspect]
     Active Substance: TUCIDINOSTAT
     Indication: Peripheral T-cell lymphoma unspecified
     Dosage: 15 MILLIGRAM, 2/WEEK
     Route: 048
     Dates: start: 20231218, end: 20231220
  4. THALIDOMIDE [Suspect]
     Active Substance: THALIDOMIDE
     Indication: Peripheral T-cell lymphoma unspecified
     Dosage: 100 MILLIGRAM, QD
     Route: 048
     Dates: start: 20231218, end: 20231220
  5. DEXAMETHASONE [Concomitant]
     Active Substance: DEXAMETHASONE
     Indication: Antiallergic therapy
     Dosage: 10 MILLIGRAM, QD
     Route: 041
     Dates: start: 20231217, end: 20231218
  6. ILAPRAZOLE [Concomitant]
     Active Substance: ILAPRAZOLE
     Indication: Prophylaxis
     Dosage: 5 MILLIGRAM, BID, ENTERIC COATED TABLET
     Route: 048
     Dates: start: 20231217, end: 20231220
  7. BOZHI GLYCOPEPTIDE [Concomitant]
     Indication: Immunisation
     Dosage: 4 MILLIGRAM, QD
     Route: 042
     Dates: start: 20231214, end: 20231219
  8. THYMOPENTIN [Concomitant]
     Active Substance: THYMOPENTIN
     Indication: Immunisation
     Dosage: 10 MILLIGRAM, QD
     Route: 030
     Dates: start: 20231214, end: 20231219
  9. INDAPAMIDE [Concomitant]
     Active Substance: INDAPAMIDE
     Indication: Hypertension
     Dosage: UNK UNK, 1X/DAY
     Route: 048
     Dates: start: 2022

REACTIONS (1)
  - Death [Fatal]

NARRATIVE: CASE EVENT DATE: 20241209
